FAERS Safety Report 22151336 (Version 1)
Quarter: 2023Q1

REPORT INFORMATION
  Report Type: Spontaneous
  Country: US (occurrence: None)
  Receive Date: 20230328
  Receipt Date: 20230328
  Transmission Date: 20230418
  Serious: Yes (Other)
  Sender: FDA-Public Use
  Company Number: None

PATIENT
  Sex: Male

DRUGS (1)
  1. REFRESH OPTIVE SINGLE VIAL [Suspect]
     Active Substance: CARBOXYMETHYLCELLULOSE SODIUM\GLYCERIN
     Indication: Dry eye
     Dosage: FREQUENCY : AS NEEDED;?
     Route: 047
     Dates: start: 20190323, end: 20230306

REACTIONS (5)
  - Eye swelling [None]
  - Blepharitis [None]
  - Chalazion [None]
  - Symptom recurrence [None]
  - Product contamination [None]

NARRATIVE: CASE EVENT DATE: 20220912
